FAERS Safety Report 9760885 (Version 1)
Quarter: 2013Q4

REPORT INFORMATION
  Report Type: Spontaneous
  Country: JP (occurrence: JP)
  Receive Date: 20131216
  Receipt Date: 20131216
  Transmission Date: 20140711
  Serious: Yes (Other)
  Sender: FDA-Public Use
  Company Number: JP-EISAI INC-E2090-03020-SPO-JP

PATIENT
  Age: 46 Year
  Sex: Male

DRUGS (1)
  1. EXCEGRAN [Suspect]
     Indication: PRODUCT USED FOR UNKNOWN INDICATION
     Dosage: UNKNOWN
     Route: 048
     Dates: start: 201208, end: 201209

REACTIONS (1)
  - Oculomucocutaneous syndrome [Unknown]
